FAERS Safety Report 9543433 (Version 1)
Quarter: 2013Q3

REPORT INFORMATION
  Report Type: Spontaneous
  Country: US (occurrence: US)
  Receive Date: 20130923
  Receipt Date: 20130923
  Transmission Date: 20140515
  Serious: Yes (Other)
  Sender: FDA-Public Use
  Company Number: US-TEVA-433007USA

PATIENT
  Sex: Female
  Weight: 66.28 kg

DRUGS (8)
  1. PANTOPRAZOLE [Suspect]
  2. METOPROLOL [Concomitant]
  3. ASPIRIN [Concomitant]
  4. VITAMINS NOS [Concomitant]
  5. CALCIUM [Concomitant]
  6. FISH OIL [Concomitant]
  7. BENAZEPRIL [Concomitant]
  8. PRAVASTATIN [Concomitant]

REACTIONS (1)
  - Myocardial infarction [Unknown]
